FAERS Safety Report 6372110-3 (Version None)
Quarter: 2009Q3

REPORT INFORMATION
  Report Type: 
  Country: None (occurrence: None)
  Receive Date: 20090917
  Receipt Date: 20090914
  Transmission Date: 20100115
  Serious: Yes (Life-Threatening, Hospitalization, Other)
  Sender: FDA-Public Use
  Company Number: GXKR2009DE10085

PATIENT
  Age: 41 Year
  Sex: Female
  Weight: 68 kg

DRUGS (3)
  1. IBUPROFEN [Suspect]
     Indication: BACK PAIN
     Dosage: 600 MG, QD, ORAL
     Route: 048
     Dates: start: 19940101, end: 20090504
  2. NOVALGIN           /SCH/ (METAMIZOLE SODIUM MONOHYDRATE) DROPS [Suspect]
     Indication: PAIN
     Dosage: 750 MG (30 DRP) DAILY EXCEPT 08 MAY 09: 2X750MG/DAY, ORAL
     Route: 048
     Dates: start: 20030101, end: 20090519
  3. NOVALGIN          /SCH/ (METAMIZOLE SODIUM MONOHYDRATE) [Suspect]
     Dosage: 1 DFM QD, INTRAVENOUS
     Route: 042
     Dates: start: 20090507, end: 20090507

REACTIONS (1)
  - THROMBOTIC THROMBOCYTOPENIC PURPURA [None]
